FAERS Safety Report 7961211-1 (Version None)
Quarter: 2011Q4

REPORT INFORMATION
  Report Type: 
  Country: None (occurrence: None)
  Receive Date: 20111207
  Receipt Date: 20111128
  Transmission Date: 20120403
  Serious: Yes (Other)
  Sender: FDA-Public Use
  Company Number: CN-BRISTOL-MYERS SQUIBB COMPANY-16253957

PATIENT
  Age: 56 Year
  Sex: Female

DRUGS (1)
  1. VELOSEF [Suspect]
     Dosage: 2DF=2 CAPSULES
     Dates: start: 20111109, end: 20111115

REACTIONS (6)
  - PALPITATIONS [None]
  - GAMMA-GLUTAMYLTRANSFERASE INCREASED [None]
  - CHROMATURIA [None]
  - BLOOD BILIRUBIN INCREASED [None]
  - TRANSAMINASES INCREASED [None]
  - DECREASED APPETITE [None]
